FAERS Safety Report 6527686-X (Version None)
Quarter: 2010Q1

REPORT INFORMATION
  Report Type: 
  Country: None (occurrence: None)
  Receive Date: 20100105
  Receipt Date: 20091231
  Transmission Date: 20100710
  Serious: Yes (Hospitalization, Other)
  Sender: FDA-Public Use
  Company Number: US-ASTRAZENECA-2007UW15766

PATIENT
  Age: 18705 Day
  Sex: Male
  Weight: 91.5 kg

DRUGS (42)
  1. SEROQUEL [Suspect]
     Indication: SLEEP DISORDER
     Route: 048
     Dates: start: 20000306
  2. SEROQUEL [Suspect]
     Indication: PSYCHOTIC DISORDER
     Route: 048
     Dates: start: 20000306
  3. SEROQUEL [Suspect]
     Route: 048
     Dates: start: 20010101, end: 20060101
  4. SEROQUEL [Suspect]
     Route: 048
     Dates: start: 20010101, end: 20060101
  5. SEROQUEL [Suspect]
     Dosage: 200 - 800 MG DAILY
     Route: 048
     Dates: start: 20010202
  6. SEROQUEL [Suspect]
     Dosage: 200 - 800 MG DAILY
     Route: 048
     Dates: start: 20010202
  7. SEROQUEL [Suspect]
     Dosage: 200- 300MG
     Route: 048
     Dates: start: 20090111
  8. SEROQUEL [Suspect]
     Dosage: 200- 300MG
     Route: 048
     Dates: start: 20090111
  9. ZYPREXA [Concomitant]
     Dosage: 10 TO 20 MG
     Dates: start: 20010202, end: 20010301
  10. HALDOL [Concomitant]
     Dates: start: 20050101
  11. EFFEXOR XR/VENLAFAXINE HYDROCHLORIDE XR [Concomitant]
     Indication: DEPRESSION
     Dosage: 300 - 375 MG DAILY
     Route: 048
     Dates: start: 20010202
  12. EFFEXOR XR/VENLAFAXINE HYDROCHLORIDE XR [Concomitant]
     Dates: start: 20090111
  13. REMERON [Concomitant]
     Indication: DEPRESSION
     Dosage: 30 -60 MG DAILY
     Route: 048
     Dates: start: 20010202
  14. LIPITOR [Concomitant]
     Route: 048
     Dates: start: 20071011
  15. MECLIZINE [Concomitant]
     Indication: VERTIGO
     Dosage: 25 MG TWO TIMES A DAY, 75 - 100 MG DAILY AS REQUIRED
     Route: 048
     Dates: start: 20030716
  16. MECLIZINE [Concomitant]
     Indication: DIZZINESS
     Dosage: 25 MG TWO TIMES A DAY, 75 - 100 MG DAILY AS REQUIRED
     Route: 048
     Dates: start: 20030716
  17. MOBIC [Concomitant]
     Route: 048
     Dates: start: 20070322
  18. MOBIC [Concomitant]
     Dates: start: 20090111
  19. PERCOCET [Concomitant]
     Indication: PAIN
     Dosage: 5/325 MG - 7.5/325 MG, EVERY 4-6 HOURS, AS REQUIRED
     Route: 048
     Dates: start: 20041215
  20. PREVACID [Concomitant]
     Indication: DYSPHAGIA
     Dosage: 10 MG TO 60 MG DAILY
     Route: 048
     Dates: start: 20010202
  21. NABUMETONE [Concomitant]
     Dates: start: 19971211
  22. HALOPERIDOL [Concomitant]
     Dosage: 10 MG TO 20 MG DAILY
     Route: 048
     Dates: start: 20071216
  23. HALOPERIDOL [Concomitant]
     Dates: start: 20090112
  24. LORAZEPAM [Concomitant]
     Dates: start: 19971022
  25. ACTOS [Concomitant]
     Dosage: 15 - 45 MG DAILY
     Route: 048
     Dates: start: 20030716
  26. ACTOS [Concomitant]
     Dates: start: 20090111
  27. FOSINOP/HCTZ [Concomitant]
     Dosage: 10/12.5 MG DAILY
     Route: 048
     Dates: start: 19970917
  28. PROTONIX [Concomitant]
     Route: 048
     Dates: start: 20071011
  29. PROTONIX [Concomitant]
     Dates: start: 20090111
  30. CYCLOBENZAPRINE [Concomitant]
     Dates: start: 19970917
  31. COGENTIN [Concomitant]
     Route: 048
     Dates: start: 20071216
  32. ASPIRIN [Concomitant]
     Route: 048
     Dates: start: 19960317
  33. ALLEGRA [Concomitant]
     Dates: start: 20061220
  34. ACCUPRIL [Concomitant]
     Dates: start: 20030716
  35. DIOVAN [Concomitant]
     Route: 048
     Dates: start: 20030716
  36. KLONOPIN [Concomitant]
     Dosage: 1 MG TO 3 MG DAILY
     Route: 048
     Dates: start: 20071011
  37. KLONOPIN [Concomitant]
  38. NITROGLYCERIN [Concomitant]
     Dosage: 0.2 MG PER HOUR, 12 ON AND 12 OFF
     Dates: start: 19940405
  39. HYDROCHLOROTHIAZIDE [Concomitant]
     Dates: start: 20090111
  40. OXYCODONE HCL [Concomitant]
     Dates: start: 20090111
  41. GLUCOTROL XL [Concomitant]
  42. GLUCOPHAGE XR [Concomitant]
     Dates: start: 20090111

REACTIONS (9)
  - BACK PAIN [None]
  - BLOOD CHOLESTEROL INCREASED [None]
  - DIABETES MELLITUS [None]
  - HYPERTENSION [None]
  - HYPOGLYCAEMIA [None]
  - MENTAL DISORDER [None]
  - NEUROPATHY PERIPHERAL [None]
  - TYPE 1 DIABETES MELLITUS [None]
  - TYPE 2 DIABETES MELLITUS [None]
